FAERS Safety Report 4592006-7 (Version None)
Quarter: 2005Q1

REPORT INFORMATION
  Report Type: 
  Country: None (occurrence: None)
  Receive Date: 20050125
  Receipt Date: 20040826
  Transmission Date: 20050727
  Serious: No
  Sender: FDA-Public Use
  Company Number: USA040876616

PATIENT
  Age: 82 Year
  Sex: Female
  Weight: 43 kg

DRUGS (3)
  1. FORTEO [Suspect]
     Indication: OSTEOPOROSIS
     Dosage: 20 UG/1 DAY
     Dates: start: 20040823
  2. BLOOD PRESSURE MEDICATION [Concomitant]
  3. FOLIC ACID [Concomitant]

REACTIONS (5)
  - DECREASED APPETITE [None]
  - FEELING ABNORMAL [None]
  - HEADACHE [None]
  - INJECTION SITE ERYTHEMA [None]
  - LISTLESS [None]
